FAERS Safety Report 5265038-3 (Version None)
Quarter: 2007Q1

REPORT INFORMATION
  Report Type: 
  Country: None (occurrence: None)
  Receive Date: 20061121
  Receipt Date: 20060726
  Transmission Date: 20070707
  Serious: No
  Sender: FDA-Public Use
  Company Number: TPA2006A01205

PATIENT
  Sex: 0

DRUGS (1)
  1. ROZEREM [Suspect]
     Dosage: 8 MG, PRE ORAL
     Route: 048
     Dates: start: 20060701

REACTIONS (2)
  - DRUG EFFECT INCREASED [None]
  - SOMNOLENCE [None]
